FAERS Safety Report 9429284 (Version 2)
Quarter: 2013Q4

REPORT INFORMATION
  Report Type: Spontaneous
  Country: US (occurrence: US)
  Receive Date: 20130730
  Receipt Date: 20131002
  Transmission Date: 20140711
  Serious: Yes (Other)
  Sender: FDA-Public Use
  Company Number: US-PFIZER INC-2013221154

PATIENT
  Sex: Male

DRUGS (1)
  1. XANAX XR [Suspect]
     Dosage: UNK

REACTIONS (4)
  - Choking [Unknown]
  - Foreign body [Unknown]
  - Dysphagia [Unknown]
  - Wrong technique in drug usage process [Unknown]
